FAERS Safety Report 10195481 (Version 1)
Quarter: 2014Q2

REPORT INFORMATION
  Report Type: Spontaneous
  Country: US (occurrence: US)
  Receive Date: 20140526
  Receipt Date: 20140526
  Transmission Date: 20141212
  Serious: Yes (Hospitalization)
  Sender: FDA-Public Use
  Company Number: US-BAYER-2014-074000

PATIENT
  Age: 60 Year
  Sex: Male

DRUGS (2)
  1. ALEVE CAPLET [Suspect]
     Dosage: UNK
     Dates: start: 2002
  2. COPAXONE [Suspect]
     Indication: MULTIPLE SCLEROSIS
     Dosage: UNK
     Route: 058
     Dates: start: 20000301, end: 2002

REACTIONS (3)
  - Anaphylactic shock [Recovered/Resolved]
  - Pruritus generalised [Recovered/Resolved]
  - Dyspnoea [Recovered/Resolved]
